FAERS Safety Report 4994671-9 (Version None)
Quarter: 2006Q2

REPORT INFORMATION
  Report Type: 
  Country: None (occurrence: None)
  Receive Date: 20060505
  Receipt Date: 20050621
  Transmission Date: 20061013
  Serious: Yes (Hospitalization)
  Sender: FDA-Public Use
  Company Number: US-MERCK-0506USA03188

PATIENT
  Age: 71 Year
  Sex: Female
  Weight: 66 kg

DRUGS (2)
  1. VIOXX [Suspect]
     Indication: BACK PAIN
     Route: 048
     Dates: start: 19991129, end: 20040601
  2. VIOXX [Suspect]
     Indication: PAIN IN EXTREMITY
     Route: 048
     Dates: start: 19991129, end: 20040601

REACTIONS (16)
  - ANAEMIA [None]
  - ASTHENIA [None]
  - AZOTAEMIA [None]
  - BACK PAIN [None]
  - CEREBROVASCULAR ACCIDENT [None]
  - CHANGE OF BOWEL HABIT [None]
  - DEHYDRATION [None]
  - EMBOLIC CEREBRAL INFARCTION [None]
  - GENITOURINARY TRACT INFECTION [None]
  - IRON DEFICIENCY [None]
  - MUSCULAR WEAKNESS [None]
  - PELVIC FLOOR MUSCLE WEAKNESS [None]
  - SHOULDER PAIN [None]
  - URINARY INCONTINENCE [None]
  - URODYNAMICS MEASUREMENT [None]
  - VULVAL DISORDER [None]
